FAERS Safety Report 7041058-3 (Version None)
Quarter: 2010Q4

REPORT INFORMATION
  Report Type: 
  Country: None (occurrence: None)
  Receive Date: 20101013
  Receipt Date: 20101006
  Transmission Date: 20110411
  Serious: Yes (Death)
  Sender: FDA-Public Use
  Company Number: JP-BAYER-201014993BYL

PATIENT
  Age: 67 Year
  Sex: Male
  Weight: 60 kg

DRUGS (4)
  1. NEXAVAR [Suspect]
     Indication: HEPATIC NEOPLASM MALIGNANT
     Dosage: UNIT DOSE: 200 MG
     Route: 048
     Dates: start: 20091001, end: 20100320
  2. ALMETA [Concomitant]
     Indication: PROPHYLAXIS
     Route: 061
     Dates: start: 20091013
  3. LIVACT [Concomitant]
     Route: 048
     Dates: start: 20091224
  4. ZANTAC [Concomitant]
     Route: 048
     Dates: start: 20091105

REACTIONS (2)
  - DIARRHOEA [None]
  - HEPATIC FAILURE [None]
